FAERS Safety Report 5772430-7 (Version None)
Quarter: 2008Q2

REPORT INFORMATION
  Report Type: 
  Country: None (occurrence: None)
  Receive Date: 20080613
  Receipt Date: 20080602
  Transmission Date: 20081010
  Serious: Yes (Other)
  Sender: FDA-Public Use
  Company Number: US-ELI_LILLY_AND_COMPANY-US200806001785

PATIENT
  Sex: Male

DRUGS (3)
  1. HUMULIN R [Suspect]
     Dates: start: 19830101
  2. VESICARE [Concomitant]
  3. ASPIRIN [Concomitant]

REACTIONS (5)
  - ADVERSE DRUG REACTION [None]
  - BLOOD GLUCOSE INCREASED [None]
  - PROSTATE CANCER [None]
  - PROSTATIC SPECIFIC ANTIGEN INCREASED [None]
  - URINARY TRACT INFECTION [None]
